FAERS Safety Report 8526309 (Version 5)
Quarter: 2016Q3

REPORT INFORMATION
  Report Type: Spontaneous
  Country: JP (occurrence: JP)
  Receive Date: 20120423
  Receipt Date: 20160818
  Transmission Date: 20161109
  Serious: Yes (Death, Hospitalization, Other)
  Sender: FDA-Public Use
  Company Number: JP-GLAXOSMITHKLINE-B0795407A

PATIENT
  Age: 30 Year
  Sex: Male

DRUGS (17)
  1. ANAFRANIL [Concomitant]
     Active Substance: CLOMIPRAMINE HYDROCHLORIDE
     Dosage: 25 MG, QID
     Dates: start: 20110906
  2. TETRAMIDE [Concomitant]
     Active Substance: MIANSERIN
     Dosage: 30 MG, QD
     Dates: start: 20120218, end: 20120221
  3. REBAMIPIDE [Concomitant]
     Active Substance: REBAMIPIDE
     Dosage: 1 DF, TID
  4. VALPROATE SODIUM. [Suspect]
     Active Substance: VALPROATE SODIUM
     Dosage: UNK
     Route: 048
  5. LUVOX [Concomitant]
     Active Substance: FLUVOXAMINE MALEATE
  6. CYMBALTA [Concomitant]
     Active Substance: DULOXETINE HYDROCHLORIDE
     Dosage: UNK
     Dates: start: 20101109
  7. CALONAL [Concomitant]
     Active Substance: ACETAMINOPHEN
  8. VALERIN [Concomitant]
     Active Substance: VALPROATE SODIUM
     Dosage: 100 MG, TID
     Dates: start: 20110925
  9. ROZEREM [Concomitant]
     Active Substance: RAMELTEON
     Dosage: 8 MG, QD
  10. TEGRETOL [Concomitant]
     Active Substance: CARBAMAZEPINE
     Dosage: 300 MG, 1D
     Dates: start: 20110830, end: 20110921
  11. LAMOTRIGINE. [Suspect]
     Active Substance: LAMOTRIGINE
     Dosage: 25 MG, QD
     Route: 048
     Dates: start: 20120218, end: 20120302
  12. DESYREL [Concomitant]
     Active Substance: TRAZODONE HYDROCHLORIDE
  13. LEXAPRO [Concomitant]
     Active Substance: ESCITALOPRAM OXALATE
     Dosage: 20 MG, QD
     Route: 048
     Dates: start: 20111226, end: 20120302
  14. AMOXAN [Concomitant]
     Active Substance: AMOXAPINE
     Dosage: 25 MG, QID
     Route: 048
  15. LAC-B [Concomitant]
     Active Substance: BIFIDOBACTERIUM SPP.
     Dosage: 1 G, TID
  16. VOLTAREN [Concomitant]
     Active Substance: DICLOFENAC SODIUM
  17. BUSCOPAN [Concomitant]
     Active Substance: BUTYLSCOPOLAMINE BROMIDE

REACTIONS (24)
  - Toxic epidermal necrolysis [Fatal]
  - Multiple organ dysfunction syndrome [Fatal]
  - Aspartate aminotransferase increased [Unknown]
  - Blood creatine increased [Unknown]
  - Generalised erythema [Unknown]
  - Chills [Unknown]
  - Rash [Unknown]
  - Pyrexia [Unknown]
  - Blood alkaline phosphatase increased [Unknown]
  - Diarrhoea [Unknown]
  - White blood cell count increased [Unknown]
  - Somnolence [Unknown]
  - Blood urea increased [Unknown]
  - C-reactive protein increased [Unknown]
  - Gamma-glutamyltransferase increased [Unknown]
  - Conjunctival hyperaemia [Unknown]
  - Vomiting [Unknown]
  - Rash maculo-papular [Unknown]
  - Haematuria [Unknown]
  - Blood lactate dehydrogenase increased [Unknown]
  - Abdominal pain upper [Unknown]
  - Alanine aminotransferase increased [Unknown]
  - Blood creatine phosphokinase increased [Unknown]
  - Lip erosion [Unknown]

NARRATIVE: CASE EVENT DATE: 20120221
